FAERS Safety Report 19610367 (Version 10)
Quarter: 2022Q2

REPORT INFORMATION
  Report Type: Report from Study
  Country: US (occurrence: US)
  Receive Date: 20210726
  Receipt Date: 20220408
  Transmission Date: 20220721
  Serious: Yes (Other)
  Sender: FDA-Public Use
  Company Number: US-ABBVIE-21K-163-4000213-00

PATIENT
  Sex: Female
  Weight: 64.468 kg

DRUGS (13)
  1. RINVOQ [Suspect]
     Active Substance: UPADACITINIB
     Indication: Rheumatoid arthritis
     Dosage: IN THE MORNING
     Route: 048
     Dates: start: 2020
  2. RINVOQ [Suspect]
     Active Substance: UPADACITINIB
     Indication: Psoriasis
     Route: 048
  3. RINVOQ [Suspect]
     Active Substance: UPADACITINIB
     Indication: Rheumatoid arthritis
     Route: 048
  4. RINVOQ [Suspect]
     Active Substance: UPADACITINIB
     Route: 048
  5. GABAPENTIN [Concomitant]
     Active Substance: GABAPENTIN
     Indication: Pain in extremity
  6. GABAPENTIN [Concomitant]
     Active Substance: GABAPENTIN
     Indication: Neuralgia
  7. LIPITOR [Concomitant]
     Active Substance: ATORVASTATIN CALCIUM
     Indication: Blood cholesterol
  8. AMBIEN [Concomitant]
     Active Substance: ZOLPIDEM TARTRATE
     Indication: Sleep disorder
  9. XANAX [Concomitant]
     Active Substance: ALPRAZOLAM
     Indication: Anxiety
  10. OXYCODONE [Concomitant]
     Active Substance: OXYCODONE
     Indication: Pain
  11. MODERNA COVID-19 VACCINE [Concomitant]
     Active Substance: ELASOMERAN
     Indication: COVID-19 immunisation
     Route: 030
     Dates: start: 20210222, end: 20210222
  12. MODERNA COVID-19 VACCINE [Concomitant]
     Active Substance: ELASOMERAN
     Route: 030
     Dates: start: 20210322, end: 20210322
  13. MODERNA COVID-19 VACCINE [Concomitant]
     Active Substance: ELASOMERAN
     Dosage: BOOSTER
     Route: 030
     Dates: start: 20211129, end: 20211129

REACTIONS (29)
  - Rotator cuff syndrome [Not Recovered/Not Resolved]
  - Ligament rupture [Not Recovered/Not Resolved]
  - Pain in extremity [Not Recovered/Not Resolved]
  - Tendon rupture [Not Recovered/Not Resolved]
  - Joint stiffness [Not Recovered/Not Resolved]
  - Tendonitis [Unknown]
  - Limb operation [Unknown]
  - Meniscus injury [Unknown]
  - Foot deformity [Unknown]
  - Spinal fusion surgery [Unknown]
  - Tendon rupture [Unknown]
  - Muscle rupture [Not Recovered/Not Resolved]
  - Tendon rupture [Unknown]
  - Shoulder operation [Unknown]
  - Spinal operation [Unknown]
  - Cyst [Not Recovered/Not Resolved]
  - Device related infection [Unknown]
  - Rotator cuff syndrome [Recovered/Resolved]
  - Vitamin D abnormal [Not Recovered/Not Resolved]
  - Blood calcium abnormal [Not Recovered/Not Resolved]
  - Bone disorder [Not Recovered/Not Resolved]
  - Nephrolithiasis [Not Recovered/Not Resolved]
  - Tendinous contracture [Not Recovered/Not Resolved]
  - Stress [Unknown]
  - Rotator cuff syndrome [Unknown]
  - Arthritis [Unknown]
  - Hypoaesthesia [Unknown]
  - Hypoacusis [Unknown]
  - Nodule [Unknown]

NARRATIVE: CASE EVENT DATE: 20210101
